FAERS Safety Report 13799433 (Version 1)
Quarter: 2017Q3

REPORT INFORMATION
  Report Type: Spontaneous
  Country: US (occurrence: US)
  Receive Date: 20170727
  Receipt Date: 20170727
  Transmission Date: 20171127
  Serious: Yes (Hospitalization)
  Sender: FDA-Public Use
  Company Number: None

PATIENT
  Age: 66 Year
  Sex: Male
  Weight: 78.6 kg

DRUGS (4)
  1. RIBAVIRIN 200MG [Suspect]
     Active Substance: RIBAVIRIN
     Indication: HEPATITIS C
     Dosage: FREQUENCY - X5/DAY
     Route: 048
     Dates: start: 20161208, end: 20170524
  2. METFORMIN [Concomitant]
     Active Substance: METFORMIN HYDROCHLORIDE
  3. INSULIN GLARGINE [Concomitant]
     Active Substance: INSULIN GLARGINE
  4. VIEKIRA PAK [Suspect]
     Active Substance: DASABUVIR\OMBITASVIR\PARITAPREVIR\RITONAVIR
     Indication: HEPATITIS C
     Dosage: DOSE AMOUNT - 12.5 - 75 - 50 + 250 MG TAB
     Route: 048
     Dates: start: 20161208, end: 20170524

REACTIONS (4)
  - Toe amputation [None]
  - Atrial fibrillation [None]
  - Osteomyelitis [None]
  - Arthritis bacterial [None]

NARRATIVE: CASE EVENT DATE: 20170120
